FAERS Safety Report 6595558 (Version 26)
Quarter: 2024Q3

REPORT INFORMATION
  Report Type: Spontaneous
  Country: US (occurrence: US)
  Receive Date: 20070424
  Receipt Date: 20240711
  Transmission Date: 20241017
  Serious: Yes (Death, Life-Threatening, Hospitalization, Other)
  Sender: PFIZER
  Company Number: PHBS2007US07329

PATIENT
  Age: 66 Year
  Sex: Male

DRUGS (10)
  1. METHYLPREDNISOLONE SODIUM SUCCINATE [Interacting]
     Active Substance: METHYLPREDNISOLONE SODIUM SUCCINATE
     Indication: Polymyositis
     Dosage: 500 MG, DAILY
     Route: 042
  2. PROPOFOL [Interacting]
     Active Substance: PROPOFOL
     Indication: Sedation
     Dosage: 30 UG/KG PER MINUTE, INFUSION
     Route: 042
  3. COLCHICINE [Interacting]
     Active Substance: COLCHICINE
     Indication: Gout
     Dosage: 1.2 MG, DAILY
  4. SIMVASTATIN [Interacting]
     Active Substance: SIMVASTATIN
     Indication: Lipids abnormal
     Dosage: 30 MG, DAILY
  5. SIMVASTATIN [Interacting]
     Active Substance: SIMVASTATIN
     Dosage: 60 MG
  6. CYCLOSPORINE [Interacting]
     Active Substance: CYCLOSPORINE
     Dosage: 150 MG, DAILY
  7. INSULIN NOS [Concomitant]
     Active Substance: INSULIN NOS
     Dosage: UNK
  8. MYCOPHENOLIC ACID [Concomitant]
     Active Substance: MYCOPHENOLIC ACID
     Indication: Immunosuppression
     Dosage: 500 MG, DAILY
  9. PREDNISONE [Concomitant]
     Active Substance: PREDNISONE
     Dosage: 7.5 MG, DAILY
  10. PREDNISONE [Concomitant]
     Active Substance: PREDNISONE
     Dosage: 30 MG, DAILY
     Route: 048

REACTIONS (6)
  - Myopathy toxic [Fatal]
  - Rhabdomyolysis [Fatal]
  - Oliguria [Fatal]
  - Potentiating drug interaction [Fatal]
  - Septic shock [Fatal]
  - Pneumonia [Fatal]
